FAERS Safety Report 6925350-6 (Version None)
Quarter: 2010Q3

REPORT INFORMATION
  Report Type: 
  Country: None (occurrence: None)
  Receive Date: 20100816
  Receipt Date: 20100805
  Transmission Date: 20110219
  Serious: Yes (Hospitalization)
  Sender: FDA-Public Use
  Company Number: US-JNJFOC-20100701299

PATIENT
  Sex: Female
  Weight: 83.46 kg

DRUGS (8)
  1. REMICADE [Suspect]
     Indication: COLITIS ULCERATIVE
     Route: 042
  2. PREMARIN [Concomitant]
     Indication: HORMONE THERAPY
     Route: 065
  3. DIOVAN [Concomitant]
     Indication: HYPERTENSION
     Route: 065
  4. LASIX [Concomitant]
     Indication: DIURETIC THERAPY
     Route: 065
  5. VALTREX [Concomitant]
     Indication: HERPES ZOSTER
     Route: 065
  6. POTASSIUM [Concomitant]
     Indication: MEDICAL DIET
     Route: 065
  7. PREVACID [Concomitant]
     Indication: GASTROOESOPHAGEAL REFLUX DISEASE
     Route: 065
  8. PRED FORTE [Concomitant]
     Indication: EYE DISORDER
     Route: 065

REACTIONS (3)
  - BRONCHITIS [None]
  - COLITIS ULCERATIVE [None]
  - DIABETES MELLITUS [None]
